FAERS Safety Report 26192452 (Version 1)
Quarter: 2025Q4

REPORT INFORMATION
  Report Type: Spontaneous
  Country: CA (occurrence: CA)
  Receive Date: 20251223
  Receipt Date: 20251223
  Transmission Date: 20260118
  Serious: Yes (Death, Other)
  Sender: BRISTOL-MYERS SQUIBB COMPANY
  Company Number: CA-BRISTOL-MYERS SQUIBB COMPANY-2025-170618

PATIENT
  Age: 40 Year
  Sex: Female
  Weight: 96 kg

DRUGS (112)
  1. ORENCIA [Suspect]
     Active Substance: ABATACEPT
     Indication: Rheumatoid arthritis
  2. ORENCIA [Suspect]
     Active Substance: ABATACEPT
  3. ORENCIA [Suspect]
     Active Substance: ABATACEPT
  4. ORENCIA [Suspect]
     Active Substance: ABATACEPT
  5. ORENCIA [Suspect]
     Active Substance: ABATACEPT
  6. ORENCIA [Suspect]
     Active Substance: ABATACEPT
  7. ORENCIA [Suspect]
     Active Substance: ABATACEPT
  8. ORENCIA [Suspect]
     Active Substance: ABATACEPT
  9. ORENCIA [Suspect]
     Active Substance: ABATACEPT
  10. ORENCIA [Suspect]
     Active Substance: ABATACEPT
  11. ORENCIA [Suspect]
     Active Substance: ABATACEPT
  12. ORENCIA [Suspect]
     Active Substance: ABATACEPT
  13. CANDESARTAN [Concomitant]
     Active Substance: CANDESARTAN
     Indication: Product used for unknown indication
     Route: 048
  14. COSENTYX [Concomitant]
     Active Substance: SECUKINUMAB
     Indication: Psoriatic arthropathy
  15. DICLOFENAC [Concomitant]
     Active Substance: DICLOFENAC
     Indication: Product used for unknown indication
  16. DICLOFENAC [Concomitant]
     Active Substance: DICLOFENAC
  17. DICLOFENAC [Concomitant]
     Active Substance: DICLOFENAC
  18. DICLOFENAC [Concomitant]
     Active Substance: DICLOFENAC
  19. ERENUMAB-AOOE [Concomitant]
     Active Substance: ERENUMAB-AOOE
     Indication: Product used for unknown indication
  20. ERENUMAB-AOOE [Concomitant]
     Active Substance: ERENUMAB-AOOE
  21. ERENUMAB-AOOE [Concomitant]
     Active Substance: ERENUMAB-AOOE
  22. ERENUMAB-AOOE [Concomitant]
     Active Substance: ERENUMAB-AOOE
  23. GOLD [Concomitant]
     Active Substance: GOLD
     Indication: Product used for unknown indication
  24. GOLD [Concomitant]
     Active Substance: GOLD
  25. HAIR KERATIN AMINO ACIDS GOLD COMPLEX [Concomitant]
     Active Substance: HAIR KERATIN AMINO ACIDS GOLD COMPLEX
     Indication: Product used for unknown indication
  26. HAIR KERATIN AMINO ACIDS GOLD COMPLEX [Concomitant]
     Active Substance: HAIR KERATIN AMINO ACIDS GOLD COMPLEX
  27. GOLD SODIUM THIOMALATE [Concomitant]
     Active Substance: GOLD SODIUM THIOMALATE
     Indication: Product used for unknown indication
  28. GOLD SODIUM THIOMALATE [Concomitant]
     Active Substance: GOLD SODIUM THIOMALATE
  29. GOLD SODIUM THIOMALATE [Concomitant]
     Active Substance: GOLD SODIUM THIOMALATE
  30. HYDROCORTISONE PROBUTATE [Concomitant]
     Active Substance: HYDROCORTISONE PROBUTATE
     Indication: Rheumatoid arthritis
  31. HYDROCORTISONE PROBUTATE [Concomitant]
     Active Substance: HYDROCORTISONE PROBUTATE
  32. HYDROXYCHLOROQUINE [Concomitant]
     Active Substance: HYDROXYCHLOROQUINE
     Indication: Rheumatoid arthritis
  33. HYDROXYCHLOROQUINE [Concomitant]
     Active Substance: HYDROXYCHLOROQUINE
  34. HYDROXYCHLOROQUINE [Concomitant]
     Active Substance: HYDROXYCHLOROQUINE
  35. HYDROXYCHLOROQUINE [Concomitant]
     Active Substance: HYDROXYCHLOROQUINE
  36. HYDROXYCHLOROQUINE [Concomitant]
     Active Substance: HYDROXYCHLOROQUINE
  37. HYDROXYCHLOROQUINE [Concomitant]
     Active Substance: HYDROXYCHLOROQUINE
  38. HYDROXYCHLOROQUINE SULFATE [Concomitant]
     Active Substance: HYDROXYCHLOROQUINE SULFATE
     Indication: Rheumatoid arthritis
  39. HYDROXYCHLOROQUINE SULFATE [Concomitant]
     Active Substance: HYDROXYCHLOROQUINE SULFATE
  40. HYRIMOZ [Concomitant]
     Active Substance: ADALIMUMAB-ADAZ
     Indication: Rheumatoid arthritis
  41. HYRIMOZ [Concomitant]
     Active Substance: ADALIMUMAB-ADAZ
  42. HYRIMOZ [Concomitant]
     Active Substance: ADALIMUMAB-ADAZ
     Route: 058
  43. HYRIMOZ [Concomitant]
     Active Substance: ADALIMUMAB-ADAZ
  44. HYRIMOZ [Concomitant]
     Active Substance: ADALIMUMAB-ADAZ
  45. INFLIXIMAB [Concomitant]
     Active Substance: INFLIXIMAB
     Indication: Rheumatoid arthritis
  46. INFLIXIMAB [Concomitant]
     Active Substance: INFLIXIMAB
  47. INFLIXIMAB [Concomitant]
     Active Substance: INFLIXIMAB
  48. INFLIXIMAB [Concomitant]
     Active Substance: INFLIXIMAB
  49. INFLIXIMAB [Concomitant]
     Active Substance: INFLIXIMAB
  50. ISOPROPYL ALCOHOL [Concomitant]
     Active Substance: ISOPROPYL ALCOHOL
     Indication: Product used for unknown indication
  51. ISOPROPYL ALCOHOL [Concomitant]
     Active Substance: ISOPROPYL ALCOHOL
  52. ISOPROPYL ALCOHOL [Concomitant]
     Active Substance: ISOPROPYL ALCOHOL
  53. ISOPROPYL ALCOHOL [Concomitant]
     Active Substance: ISOPROPYL ALCOHOL
  54. LAMICTAL [Concomitant]
     Active Substance: LAMOTRIGINE
     Indication: Product used for unknown indication
  55. LAMICTAL [Concomitant]
     Active Substance: LAMOTRIGINE
  56. LAMICTAL [Concomitant]
     Active Substance: LAMOTRIGINE
  57. LAMICTAL [Concomitant]
     Active Substance: LAMOTRIGINE
  58. LAMICTAL [Concomitant]
     Active Substance: LAMOTRIGINE
  59. LAMICTAL [Concomitant]
     Active Substance: LAMOTRIGINE
  60. METFORMIN HYDROCHLORIDE [Concomitant]
     Active Substance: METFORMIN HYDROCHLORIDE
     Indication: Product used for unknown indication
  61. METHOTREXATE [Concomitant]
     Active Substance: METHOTREXATE
     Indication: Rheumatoid arthritis
  62. METHOTREXATE [Concomitant]
     Active Substance: METHOTREXATE
  63. METHOTREXATE [Concomitant]
     Active Substance: METHOTREXATE
  64. METHOTREXATE [Concomitant]
     Active Substance: METHOTREXATE
  65. METHYLPREDNISOLONE [Concomitant]
     Active Substance: METHYLPREDNISOLONE
     Indication: Product used for unknown indication
  66. METHYLPREDNISOLONE [Concomitant]
     Active Substance: METHYLPREDNISOLONE
  67. METHYLPREDNISOLONE SODIUM SUCCINATE [Concomitant]
     Active Substance: METHYLPREDNISOLONE SODIUM SUCCINATE
     Indication: Product used for unknown indication
  68. METHYLPREDNISOLONE SODIUM SUCCINATE [Concomitant]
     Active Substance: METHYLPREDNISOLONE SODIUM SUCCINATE
  69. MINOCYCLINE [Concomitant]
     Active Substance: MINOCYCLINE HYDROCHLORIDE
     Indication: Rheumatoid arthritis
  70. MINOCYCLINE [Concomitant]
     Active Substance: MINOCYCLINE HYDROCHLORIDE
  71. MINOCYCLINE [Concomitant]
     Active Substance: MINOCYCLINE HYDROCHLORIDE
  72. MINOCYCLINE [Concomitant]
     Active Substance: MINOCYCLINE HYDROCHLORIDE
  73. MINOCYCLINE [Concomitant]
     Active Substance: MINOCYCLINE HYDROCHLORIDE
  74. MINOCYCLINE [Concomitant]
     Active Substance: MINOCYCLINE HYDROCHLORIDE
  75. MINOCYCLINE [Concomitant]
     Active Substance: MINOCYCLINE HYDROCHLORIDE
  76. MINOCYCLINE [Concomitant]
     Active Substance: MINOCYCLINE HYDROCHLORIDE
     Route: 030
  77. MINOCYCLINE [Concomitant]
     Active Substance: MINOCYCLINE HYDROCHLORIDE
     Route: 030
  78. MINOCYCLINE [Concomitant]
     Active Substance: MINOCYCLINE HYDROCHLORIDE
  79. MIRABEGRON [Concomitant]
     Active Substance: MIRABEGRON
     Indication: Product used for unknown indication
  80. MIRABEGRON [Concomitant]
     Active Substance: MIRABEGRON
  81. MYOCHRYSINE [Concomitant]
     Active Substance: GOLD SODIUM THIOMALATE
     Indication: Rheumatoid arthritis
     Route: 030
  82. MYOCHRYSINE [Concomitant]
     Active Substance: GOLD SODIUM THIOMALATE
     Route: 030
  83. NAPROXEN [Concomitant]
     Active Substance: NAPROXEN
     Indication: Product used for unknown indication
  84. NAPROXEN SODIUM [Concomitant]
     Active Substance: NAPROXEN SODIUM
     Indication: Rheumatoid arthritis
  85. NAPROXEN SODIUM [Concomitant]
     Active Substance: NAPROXEN SODIUM
  86. NAPROXEN SODIUM [Concomitant]
     Active Substance: NAPROXEN SODIUM
  87. NICOTINAMIDE [Concomitant]
     Active Substance: NIACINAMIDE
     Indication: Product used for unknown indication
  88. NICOTINAMIDE [Concomitant]
     Active Substance: NIACINAMIDE
  89. NUCALA [Concomitant]
     Active Substance: MEPOLIZUMAB
     Indication: Product used for unknown indication
  90. NUCALA [Concomitant]
     Active Substance: MEPOLIZUMAB
  91. OTEZLA [Concomitant]
     Active Substance: APREMILAST
     Indication: Rheumatoid arthritis
  92. OTEZLA [Concomitant]
     Active Substance: APREMILAST
  93. OXYCODONE [Concomitant]
     Active Substance: OXYCODONE
     Indication: Product used for unknown indication
  94. RITUXIMAB [Concomitant]
     Active Substance: RITUXIMAB
     Indication: Product used for unknown indication
  95. RITUXIMAB [Concomitant]
     Active Substance: RITUXIMAB
  96. RITUXIMAB [Concomitant]
     Active Substance: RITUXIMAB
  97. RITUXIMAB [Concomitant]
     Active Substance: RITUXIMAB
  98. RITUXIMAB [Concomitant]
     Active Substance: RITUXIMAB
  99. RITUXIMAB [Concomitant]
     Active Substance: RITUXIMAB
  100. RITUXIMAB [Concomitant]
     Active Substance: RITUXIMAB
  101. RITUXIMAB [Concomitant]
     Active Substance: RITUXIMAB
  102. RITUXIMAB [Concomitant]
     Active Substance: RITUXIMAB
  103. ALENDRONATE SODIUM [Concomitant]
     Active Substance: ALENDRONATE SODIUM
     Indication: Rheumatoid arthritis
     Route: 048
  104. ALENDRONATE SODIUM [Concomitant]
     Active Substance: ALENDRONATE SODIUM
  105. LEFLUNOMIDE [Concomitant]
     Active Substance: LEFLUNOMIDE
     Indication: Product used for unknown indication
  106. LEFLUNOMIDE [Concomitant]
     Active Substance: LEFLUNOMIDE
  107. VOLTAREN [Concomitant]
     Active Substance: DICLOFENAC SODIUM
     Indication: Product used for unknown indication
  108. VOLTAREN [Concomitant]
     Active Substance: DICLOFENAC SODIUM
  109. VOLTAREN [Concomitant]
     Active Substance: DICLOFENAC SODIUM
  110. MINOCYCLINE [Concomitant]
     Active Substance: MINOCYCLINE HYDROCHLORIDE
     Indication: Rheumatoid arthritis
     Route: 030
  111. MINOCYCLINE [Concomitant]
     Active Substance: MINOCYCLINE HYDROCHLORIDE
     Route: 030
  112. ALENDRONATE SODIUM [Concomitant]
     Active Substance: ALENDRONATE SODIUM
     Indication: Rheumatoid arthritis

REACTIONS (1)
  - Death [Fatal]
